APPROVED DRUG PRODUCT: SEVELAMER CARBONATE
Active Ingredient: SEVELAMER CARBONATE
Strength: 800MG
Dosage Form/Route: TABLET;ORAL
Application: A204600 | Product #001
Applicant: CHARTWELL RX SCIENCES LLC
Approved: Jan 14, 2021 | RLD: No | RS: No | Type: DISCN